FAERS Safety Report 15715837 (Version 4)
Quarter: 2019Q4

REPORT INFORMATION
  Report Type: Spontaneous
  Country: JP (occurrence: JP)
  Receive Date: 20181212
  Receipt Date: 20191226
  Transmission Date: 20200122
  Serious: Yes (Death, Other)
  Sender: FDA-Public Use
  Company Number: PHJP2018JP020519

PATIENT
  Age: 84 Year
  Sex: Female
  Weight: 28.9 kg

DRUGS (7)
  1. RANMARK [Suspect]
     Active Substance: DENOSUMAB
     Indication: METASTASES TO BONE
     Dosage: UNK
     Route: 065
     Dates: start: 201209, end: 201410
  2. ARIMIDEX [Concomitant]
     Active Substance: ANASTROZOLE
     Indication: PRODUCT USED FOR UNKNOWN INDICATION
     Dosage: UNK
     Route: 065
     Dates: end: 200805
  3. DOCETAXEL. [Concomitant]
     Active Substance: DOCETAXEL
     Indication: CHEMOTHERAPY
     Dosage: UNK
     Route: 065
  4. TRASTUZUMAB. [Concomitant]
     Active Substance: TRASTUZUMAB
     Indication: METASTASES TO BONE
     Dosage: UNK
     Route: 065
     Dates: start: 200805, end: 201309
  5. ZOMETA [Suspect]
     Active Substance: ZOLEDRONIC ACID
     Indication: METASTASES TO BONE
     Dosage: UNK
     Route: 041
     Dates: start: 200805, end: 201209
  6. RANMARK [Suspect]
     Active Substance: DENOSUMAB
     Indication: RENAL DISORDER
     Dosage: UNK
     Route: 065
     Dates: end: 20161015
  7. HERCEPTIN [Concomitant]
     Active Substance: TRASTUZUMAB
     Indication: CHEMOTHERAPY
     Dosage: UNK
     Route: 065

REACTIONS (15)
  - Osteonecrosis of jaw [Fatal]
  - Tooth loss [Fatal]
  - Infection [Unknown]
  - Fall [Fatal]
  - General physical health deterioration [Unknown]
  - Feeding disorder [Fatal]
  - Breath odour [Fatal]
  - Metastases to bone [Unknown]
  - Asthenia [Fatal]
  - Cerebral infarction [Fatal]
  - Exposed bone in jaw [Fatal]
  - Loss of consciousness [Fatal]
  - Dural abscess [Fatal]
  - Malignant neoplasm progression [Unknown]
  - Seizure [Fatal]

NARRATIVE: CASE EVENT DATE: 2014
